FAERS Safety Report 20836235 (Version 1)
Quarter: 2022Q2

REPORT INFORMATION
  Report Type: Report from Study
  Country: CA (occurrence: CA)
  Receive Date: 20220516
  Receipt Date: 20220516
  Transmission Date: 20220721
  Serious: Yes (Hospitalization, Other)
  Sender: FDA-Public Use
  Company Number: CA-BRISTOL-MYERS SQUIBB COMPANY-CAN-20220304428

PATIENT
  Age: 66 Year
  Sex: Male

DRUGS (2)
  1. AZACITIDINE [Suspect]
     Active Substance: AZACITIDINE
     Indication: Acute myeloid leukaemia
     Dosage: 300 UNITS NOT SPECIFIED
     Dates: start: 20211119
  2. AZACITIDINE [Suspect]
     Active Substance: AZACITIDINE
     Dates: start: 20210710

REACTIONS (3)
  - Adverse drug reaction [Unknown]
  - Malaise [Unknown]
  - Full blood count decreased [Unknown]
